FAERS Safety Report 17284306 (Version 1)
Quarter: 2020Q1

REPORT INFORMATION
  Report Type: Spontaneous
  Country: US (occurrence: US)
  Receive Date: 20200117
  Receipt Date: 20200117
  Transmission Date: 20200409
  Serious: No
  Sender: FDA-Public Use
  Company Number: US-ASTRAZENECA-2019SF85725

PATIENT
  Age: 26399 Day
  Sex: Male
  Weight: 91.6 kg

DRUGS (1)
  1. BYDUREON BCISE [Suspect]
     Active Substance: EXENATIDE
     Indication: TYPE 2 DIABETES MELLITUS
     Route: 058
     Dates: start: 20190218

REACTIONS (3)
  - Incorrect dose administered [Unknown]
  - Nasopharyngitis [Unknown]
  - Device leakage [Unknown]

NARRATIVE: CASE EVENT DATE: 20191217
